FAERS Safety Report 18548991 (Version 1)
Quarter: 2020Q4

REPORT INFORMATION
  Report Type: Spontaneous
  Country: CA (occurrence: CA)
  Receive Date: 20201126
  Receipt Date: 20201126
  Transmission Date: 20210114
  Serious: Yes (Hospitalization, Other)
  Sender: FDA-Public Use
  Company Number: CA-GILEAD-2020-0505181

PATIENT
  Age: 61 Year
  Sex: Male
  Weight: 81.8 kg

DRUGS (9)
  1. VITAMIN B1 [Concomitant]
     Active Substance: THIAMINE HYDROCHLORIDE
  2. RAMIPRIL. [Concomitant]
     Active Substance: RAMIPRIL
  3. EPCLUSA [Suspect]
     Active Substance: SOFOSBUVIR\VELPATASVIR
     Indication: HEPATITIS C
     Dosage: 1 DOSAGE FORM
     Route: 048
     Dates: start: 20201029
  4. MAGLUCATE [Concomitant]
     Active Substance: MAGNESIUM GLUCONATE
  5. PANTOPRAZOLE [Concomitant]
     Active Substance: PANTOPRAZOLE
  6. OLANZAPINE. [Concomitant]
     Active Substance: OLANZAPINE
  7. NALTREXONE [Concomitant]
     Active Substance: NALTREXONE
  8. PRAVASTATIN. [Concomitant]
     Active Substance: PRAVASTATIN
  9. ALLOPURINOL. [Concomitant]
     Active Substance: ALLOPURINOL

REACTIONS (3)
  - Alcohol abuse [Recovered/Resolved]
  - Mallory-Weiss syndrome [Recovered/Resolved]
  - Pancreatitis [Recovered/Resolved]

NARRATIVE: CASE EVENT DATE: 20201116
